FAERS Safety Report 7150904-4 (Version None)
Quarter: 2010Q4

REPORT INFORMATION
  Report Type: 
  Country: None (occurrence: None)
  Receive Date: 20101210
  Receipt Date: 20100128
  Transmission Date: 20110411
  Serious: Yes (Death)
  Sender: FDA-Public Use
  Company Number: ZA-ROCHE-747065

PATIENT

DRUGS (2)
  1. AVASTIN [Suspect]
     Route: 065
  2. XELODA [Suspect]
     Route: 065

REACTIONS (1)
  - DEATH [None]
